FAERS Safety Report 24184388 (Version 2)
Quarter: 2024Q3

REPORT INFORMATION
  Report Type: Spontaneous
  Country: ES (occurrence: ES)
  Receive Date: 20240807
  Receipt Date: 20240812
  Transmission Date: 20241017
  Serious: Yes (Death, Other)
  Sender: NOVARTIS
  Company Number: ES-002147023-NVSC2024ES157567

PATIENT
  Age: 70 Year
  Sex: Female

DRUGS (7)
  1. LUTATHERA [Suspect]
     Active Substance: LUTETIUM OXODOTREOTIDE LU-177
     Indication: Pancreatic neuroendocrine tumour metastatic
     Dosage: 200 MCI
     Route: 042
     Dates: start: 20190606, end: 201912
  2. LUTATHERA [Suspect]
     Active Substance: LUTETIUM OXODOTREOTIDE LU-177
     Dosage: UNK
     Route: 065
  3. LUTATHERA [Suspect]
     Active Substance: LUTETIUM OXODOTREOTIDE LU-177
     Dosage: UNK
     Route: 065
  4. LUTATHERA [Suspect]
     Active Substance: LUTETIUM OXODOTREOTIDE LU-177
     Dosage: 200 MCI (5TH DOSE)
     Route: 042
     Dates: start: 20220201
  5. LUTATHERA [Suspect]
     Active Substance: LUTETIUM OXODOTREOTIDE LU-177
     Dosage: UNK (6TH DOSE)
     Route: 065
     Dates: start: 20220405
  6. LUTATHERA [Suspect]
     Active Substance: LUTETIUM OXODOTREOTIDE LU-177
     Dosage: UNK (7TH DOSE)
     Route: 065
     Dates: start: 20220615
  7. LUTATHERA [Suspect]
     Active Substance: LUTETIUM OXODOTREOTIDE LU-177
     Dosage: UNK (8TH DOSE)
     Route: 065
     Dates: start: 20220906

REACTIONS (12)
  - Pancreatic neuroendocrine tumour metastatic [Fatal]
  - Malignant neoplasm progression [Fatal]
  - Pancreatic disorder [Fatal]
  - Myeloproliferative neoplasm [Fatal]
  - Blast cells present [Fatal]
  - Lethargy [Fatal]
  - Acute kidney injury [Fatal]
  - Cardiac failure [Fatal]
  - Abdominal sepsis [Fatal]
  - Therapeutic product effect incomplete [Fatal]
  - Myelodysplastic syndrome [Fatal]
  - Intestinal ischaemia [Fatal]

NARRATIVE: CASE EVENT DATE: 20191201
